FAERS Safety Report 4985043-1 (Version None)
Quarter: 2006Q2

REPORT INFORMATION
  Report Type: 
  Country: None (occurrence: None)
  Receive Date: 20060421
  Receipt Date: 20060410
  Transmission Date: 20061013
  Serious: Yes (Death)
  Sender: FDA-Public Use
  Company Number: T200600188

PATIENT
  Age: 14 Month
  Sex: Female

DRUGS (1)
  1. METHADONE HCL [Suspect]
     Indication: SEDATION

REACTIONS (5)
  - ASPHYXIA [None]
  - COMA [None]
  - CYANOSIS [None]
  - HYPOPERFUSION [None]
  - PULMONARY OEDEMA [None]
